FAERS Safety Report 16281148 (Version 1)
Quarter: 2019Q2

REPORT INFORMATION
  Report Type: Report from Study
  Country: CO (occurrence: CO)
  Receive Date: 20190507
  Receipt Date: 20190507
  Transmission Date: 20190711
  Serious: Yes (Hospitalization, Other)
  Sender: FDA-Public Use
  Company Number: CO-ASTELLAS-2018US039179

PATIENT
  Sex: Male
  Weight: 56 kg

DRUGS (1)
  1. TACROLIMUS. [Suspect]
     Active Substance: TACROLIMUS
     Indication: RENAL TRANSPLANT
     Dosage: 7 MG, ONCE DAILY (1 CAPSULE OF 5 MG AND 2 CAPSULES OF 1 MG)
     Route: 048
     Dates: start: 20131112, end: 20180930

REACTIONS (8)
  - Renal cyst [Unknown]
  - Renal cyst [Unknown]
  - Renal graft infection [Unknown]
  - Renal impairment [Unknown]
  - Brain neoplasm [Unknown]
  - Brain neoplasm [Unknown]
  - Renal cancer [Unknown]
  - BK virus infection [Unknown]

NARRATIVE: CASE EVENT DATE: 2017
